FAERS Safety Report 4433264-9 (Version None)
Quarter: 2004Q3

REPORT INFORMATION
  Report Type: 
  Country: None (occurrence: None)
  Receive Date: 20040826
  Receipt Date: 20040820
  Transmission Date: 20050211
  Serious: Yes (Death)
  Sender: FDA-Public Use
  Company Number: PHHO2004PH11808

PATIENT
  Sex: Female

DRUGS (1)
  1. GLEEVEC [Suspect]
     Indication: CHRONIC MYELOID LEUKAEMIA
     Dosage: 300 MG, QD
     Route: 048
     Dates: start: 20030915, end: 20040701

REACTIONS (6)
  - DEPRESSED LEVEL OF CONSCIOUSNESS [None]
  - INFECTION [None]
  - METABOLIC DISORDER [None]
  - PNEUMONIA [None]
  - SENSORY DISTURBANCE [None]
  - SEPSIS [None]
